FAERS Safety Report 5143494-9 (Version None)
Quarter: 2006Q4

REPORT INFORMATION
  Report Type: 
  Country: None (occurrence: None)
  Receive Date: 20061103
  Receipt Date: 20061023
  Transmission Date: 20070319
  Serious: Yes (Other)
  Sender: FDA-Public Use
  Company Number: J200604475

PATIENT
  Age: 70 Year
  Sex: Male

DRUGS (3)
  1. SAWACILLIN [Suspect]
     Dosage: 1500MG PER DAY
     Route: 048
     Dates: start: 20060118, end: 20060125
  2. LANSOPRAZOLE [Suspect]
     Dosage: 60MG PER DAY
     Route: 048
     Dates: start: 20060118, end: 20060125
  3. KLARICID [Suspect]
     Dosage: 800MG PER DAY
     Route: 048
     Dates: start: 20060118, end: 20060125

REACTIONS (4)
  - OCULAR HYPERAEMIA [None]
  - OCULOMUCOCUTANEOUS SYNDROME [None]
  - RASH GENERALISED [None]
  - STEVENS-JOHNSON SYNDROME [None]
